FAERS Safety Report 10732663 (Version 1)
Quarter: 2015Q1

REPORT INFORMATION
  Report Type: Spontaneous
  Country: US (occurrence: US)
  Receive Date: 20150123
  Receipt Date: 20150123
  Transmission Date: 20150721
  Serious: No
  Sender: FDA-Public Use
  Company Number: US-009507513-1501USA005463

PATIENT
  Sex: Female

DRUGS (1)
  1. NOXAFIL [Suspect]
     Active Substance: POSACONAZOLE
     Indication: FUNGAL INFECTION
     Dosage: 400 MG, BID
     Route: 048

REACTIONS (3)
  - Cellulitis [Unknown]
  - Skin exfoliation [Unknown]
  - Incorrect dose administered [Unknown]
